FAERS Safety Report 8452073 (Version 4)
Quarter: 2020Q2

REPORT INFORMATION
  Report Type: Spontaneous
  Country: GB (occurrence: GB)
  Receive Date: 20120309
  Receipt Date: 20200609
  Transmission Date: 20200714
  Serious: Yes (Congenital Anomaly, Other)
  Sender: FDA-Public Use
  Company Number: GB-PFIZER INC-2009194257

PATIENT
  Age: 12 Week
  Sex: Male

DRUGS (7)
  1. REBOXETINE [Suspect]
     Active Substance: REBOXETINE
     Indication: BIPOLAR DISORDER
     Dosage: 4 MG, UNK
     Route: 064
     Dates: start: 2005, end: 20080529
  2. CODEINE [Suspect]
     Active Substance: CODEINE
     Dosage: 30 MG, AS NEEDED
     Route: 064
  3. IRON [Suspect]
     Active Substance: IRON
     Dosage: 200 MG, 2X/DAY
     Route: 064
     Dates: start: 20081006
  4. QUETIAPINE FUMARATE. [Suspect]
     Active Substance: QUETIAPINE FUMARATE
     Indication: BIPOLAR DISORDER
     Dosage: 100 MG, UNK
     Route: 064
     Dates: start: 20080421, end: 20080616
  5. PRIADEL [Suspect]
     Active Substance: LITHIUM
     Indication: BIPOLAR DISORDER
     Dosage: 1200 MG
     Route: 064
     Dates: start: 2005
  6. AMOXICILLIN. [Suspect]
     Active Substance: AMOXICILLIN
     Dosage: 250 MG, 3X/DAY
     Route: 064
     Dates: start: 20080707, end: 20080714
  7. VENLAFAXINE HCL [Suspect]
     Active Substance: VENLAFAXINE HYDROCHLORIDE
     Indication: BIPOLAR DISORDER
     Dosage: 150 MG, UNK
     Route: 064
     Dates: start: 20050624

REACTIONS (2)
  - Pierre Robin syndrome [Unknown]
  - Maternal exposure during pregnancy [Unknown]
